FAERS Safety Report 22620676 (Version 1)
Quarter: 2023Q2

REPORT INFORMATION
  Report Type: Spontaneous
  Country: CA (occurrence: CA)
  Receive Date: 20230620
  Receipt Date: 20230620
  Transmission Date: 20230721
  Serious: Yes (Death, Life-Threatening, Hospitalization, Other)
  Sender: FDA-Public Use
  Company Number: CA-FreseniusKabi-FK202308672

PATIENT
  Age: 68 Year
  Sex: Male

DRUGS (4)
  1. OXALIPLATIN [Suspect]
     Active Substance: OXALIPLATIN
     Indication: Product used for unknown indication
  2. FLUOROURACIL [Suspect]
     Active Substance: FLUOROURACIL
     Indication: Product used for unknown indication
     Dosage: 93.0 MILLIGRAM
  3. OPDIVO [Suspect]
     Active Substance: NIVOLUMAB
     Indication: Oesophageal carcinoma
     Dosage: 240.0 MILLIGRAM
     Route: 042
  4. HYDROMORPHONE HYDROCHLORIDE [Concomitant]
     Active Substance: HYDROMORPHONE HYDROCHLORIDE
     Indication: Abdominal tenderness
     Dosage: 1 EVERY 4 HOURS

REACTIONS (24)
  - Asthenia [Fatal]
  - Bradykinesia [Fatal]
  - Chromaturia [Fatal]
  - Cold sweat [Fatal]
  - Confusional state [Fatal]
  - Constipation [Fatal]
  - Decreased appetite [Fatal]
  - Diarrhoea [Fatal]
  - Dizziness [Fatal]
  - Dizziness postural [Fatal]
  - Dry skin [Fatal]
  - Gait disturbance [Fatal]
  - Hypoacusis [Fatal]
  - Hypoxia [Fatal]
  - Inappropriate antidiuretic hormone secretion [Fatal]
  - Malaise [Fatal]
  - Memory impairment [Fatal]
  - Mucous stools [Fatal]
  - Muscular weakness [Fatal]
  - Skin disorder [Fatal]
  - Somnolence [Fatal]
  - Temperature intolerance [Fatal]
  - Tremor [Fatal]
  - Weight decreased [Fatal]
